FAERS Safety Report 11827739 (Version 2)
Quarter: 2015Q4

REPORT INFORMATION
  Report Type: Spontaneous
  Country: US (occurrence: US)
  Receive Date: 20151211
  Receipt Date: 20151211
  Transmission Date: 20160305
  Serious: No
  Sender: FDA-Public Use
  Company Number: PHEH2003US05448

PATIENT
  Age: 75 Year
  Sex: Male

DRUGS (3)
  1. SANDOSTATIN LAR DEPOT [Suspect]
     Active Substance: OCTREOTIDE ACETATE
     Indication: DIARRHOEA
     Dosage: 30 MG, UNK
     Dates: start: 20030627
  2. COUMADIN [Interacting]
     Active Substance: WARFARIN SODIUM
     Dosage: 1 MG, QD
     Route: 048
     Dates: end: 20030701
  3. SANDOSTATIN [Interacting]
     Active Substance: OCTREOTIDE ACETATE
     Indication: POST PROCEDURAL DIARRHOEA
     Dosage: 100 UG, BID
     Route: 058
     Dates: start: 20030611, end: 20030702

REACTIONS (3)
  - International normalised ratio increased [Recovered/Resolved]
  - Haemorrhage [Recovered/Resolved with Sequelae]
  - Potentiating drug interaction [Recovered/Resolved with Sequelae]

NARRATIVE: CASE EVENT DATE: 20030626
